FAERS Safety Report 18856434 (Version 1)
Quarter: 2021Q1

REPORT INFORMATION
  Report Type: Spontaneous
  Country: NL (occurrence: NL)
  Receive Date: 20210207
  Receipt Date: 20210207
  Transmission Date: 20210420
  Serious: Yes (Hospitalization)
  Sender: FDA-Public Use
  Company Number: NL-JNJFOC-20210203230

PATIENT
  Age: 52 Year
  Sex: Female
  Weight: 50.7 kg

DRUGS (12)
  1. CETIRIZINE DIHYDROCHLORIDE [Concomitant]
     Active Substance: CETIRIZINE HYDROCHLORIDE
  2. XYLOMETAZOLINE [Concomitant]
     Active Substance: XYLOMETAZOLINE
  3. BETAHISTINE [Concomitant]
     Active Substance: BETAHISTINE
  4. RISPERDAL [Suspect]
     Active Substance: RISPERIDONE
     Indication: SCHIZOPHRENIA
     Dosage: 1X PER DAG 8 MG
     Route: 065
     Dates: start: 1998, end: 20201110
  5. AMOXICILLINE [AMOXICILLIN] [Concomitant]
     Active Substance: AMOXICILLIN
  6. MACROGOL [Concomitant]
     Active Substance: POLYETHYLENE GLYCOLS
  7. PANTOPRAZOLE [Concomitant]
     Active Substance: PANTOPRAZOLE
  8. OXAZEPAM. [Concomitant]
     Active Substance: OXAZEPAM
  9. SIMVASTATINE [Concomitant]
     Active Substance: SIMVASTATIN
  10. MOMETASONE [Concomitant]
     Active Substance: MOMETASONE
  11. SALMETEROL/FLUTICASONPROPIONAAT [Concomitant]
     Active Substance: FLUTICASONE PROPIONATE\SALMETEROL XINAFOATE
  12. FLUTICASONE. [Concomitant]
     Active Substance: FLUTICASONE

REACTIONS (2)
  - Hyponatraemia [Recovered/Resolved]
  - Dyspnoea [Recovered/Resolved]

NARRATIVE: CASE EVENT DATE: 20201108
